FAERS Safety Report 10203422 (Version 1)
Quarter: 2014Q2

REPORT INFORMATION
  Report Type: Report from Study
  Country: US (occurrence: US)
  Receive Date: 20140529
  Receipt Date: 20140529
  Transmission Date: 20141212
  Serious: Yes (Hospitalization)
  Sender: FDA-Public Use
  Company Number: PHHY2014US062862

PATIENT
  Age: 58 Year
  Sex: Female

DRUGS (10)
  1. OXALIPLATIN [Suspect]
     Indication: COLON CANCER
     Dosage: 85 MG/M2, UNK
     Route: 042
     Dates: start: 20131210
  2. LEUCOVORIN CALCIUM [Suspect]
     Indication: COLON CANCER
     Dosage: 200 MG/M2, UNK
     Route: 042
     Dates: start: 20131210
  3. IRINOTECAN [Suspect]
     Indication: COLON CANCER
     Dosage: 165 MG/M2, UNK
     Route: 042
     Dates: start: 20131210
  4. 5-FLUOROURACIL [Suspect]
     Indication: COLON CANCER
     Dosage: 3200 MG/M2, UNK
     Route: 040
     Dates: start: 20131210
  5. BEVACIZUMAB [Suspect]
     Indication: COLON CANCER
     Dosage: 5 MG/M2, UNK
     Route: 042
     Dates: start: 20131210
  6. BENAZEPRIL [Concomitant]
     Dosage: 10 MG, UNK
     Dates: start: 20131223, end: 20131225
  7. NEUPOGEN [Concomitant]
     Dosage: 480 UG, UNK
     Dates: start: 20131219, end: 20131222
  8. ZOFRAN [Concomitant]
     Dosage: 4 MG, UNK
     Dates: start: 20131219, end: 20131225
  9. NORVASC [Concomitant]
     Dosage: 5 MG, UNK
     Dates: start: 20131219, end: 20131225
  10. MORPHINE [Concomitant]
     Dosage: 4 MG, UNK
     Dates: start: 20131219, end: 20131219

REACTIONS (2)
  - Neutropenia [Recovered/Resolved]
  - Nausea [Recovered/Resolved]
